FAERS Safety Report 24932538 (Version 1)
Quarter: 2025Q1

REPORT INFORMATION
  Report Type: Spontaneous
  Country: PL (occurrence: PL)
  Receive Date: 20250205
  Receipt Date: 20250205
  Transmission Date: 20250409
  Serious: No
  Sender: EXELIXIS
  Company Number: PL-IPSEN Group, Research and Development-2024-17160

PATIENT
  Sex: Female

DRUGS (1)
  1. CABOMETYX [Suspect]
     Active Substance: CABOZANTINIB S-MALATE
     Indication: Renal cell carcinoma
     Route: 065

REACTIONS (6)
  - Blood pressure increased [Unknown]
  - Skin lesion [Unknown]
  - Pruritus [Unknown]
  - Skin abrasion [Unknown]
  - Erythema [Unknown]
  - Wound [Unknown]
